FAERS Safety Report 22934531 (Version 2)
Quarter: 2023Q4

REPORT INFORMATION
  Report Type: Report from Study
  Country: US (occurrence: US)
  Receive Date: 20230912
  Receipt Date: 20231004
  Transmission Date: 20240110
  Serious: Yes (Hospitalization, Other)
  Sender: FDA-Public Use
  Company Number: US-ABBVIE-5401284

PATIENT
  Age: 61 Year
  Sex: Female

DRUGS (1)
  1. SKYRIZI [Suspect]
     Active Substance: RISANKIZUMAB-RZAA
     Indication: Product used for unknown indication
     Route: 058

REACTIONS (14)
  - Pneumothorax traumatic [Unknown]
  - Hidradenitis [Unknown]
  - Pelvic organ injury [Unknown]
  - Skin cancer [Unknown]
  - Skeletal injury [Unknown]
  - Head injury [Unknown]
  - Joint injury [Unknown]
  - Road traffic accident [Unknown]
  - Ear pain [Unknown]
  - Traumatic liver injury [Unknown]
  - Thyroid neoplasm [Unknown]
  - Face injury [Unknown]
  - Chest injury [Unknown]
  - Dysarthria [Unknown]

NARRATIVE: CASE EVENT DATE: 20230702
